FAERS Safety Report 4845730-2 (Version None)
Quarter: 2005Q4

REPORT INFORMATION
  Report Type: 
  Country: None (occurrence: None)
  Receive Date: 20051205
  Receipt Date: 20051205
  Transmission Date: 20060501
  Serious: No
  Sender: FDA-Public Use
  Company Number: None

PATIENT
  Age: 84 Year
  Sex: Female
  Weight: 65.318 kg

DRUGS (7)
  1. CYMBALTA [Suspect]
     Indication: DEPRESSION
     Dosage: PO DAILY
     Route: 042
  2. LIPITOR [Concomitant]
  3. TEVETON/HCTZ [Concomitant]
  4. ASPIRIN [Concomitant]
  5. QUININE [Concomitant]
  6. VITAMIN [Concomitant]
  7. PERCOCET [Concomitant]

REACTIONS (6)
  - BLOOD PRESSURE DIASTOLIC INCREASED [None]
  - BODY TEMPERATURE INCREASED [None]
  - DRUG HYPERSENSITIVITY [None]
  - LUNG INFILTRATION [None]
  - SWELLING FACE [None]
  - URTICARIA GENERALISED [None]
